FAERS Safety Report 12202798 (Version 2)
Quarter: 2016Q2

REPORT INFORMATION
  Report Type: Spontaneous
  Country: US (occurrence: US)
  Receive Date: 20160322
  Receipt Date: 20160412
  Transmission Date: 20160815
  Serious: No
  Sender: FDA-Public Use
  Company Number: US-ACTELION PHARMACEUTICALS US, INC.-A-NJ2016-133352

PATIENT
  Age: 31 Year
  Sex: Female
  Weight: 49.9 kg

DRUGS (4)
  1. AMBRISENTAN [Suspect]
     Active Substance: AMBRISENTAN
     Indication: PULMONARY ARTERIAL HYPERTENSION
     Dosage: 5 MG, QD
     Route: 048
     Dates: start: 20151218
  2. REMODULIN [Suspect]
     Active Substance: TREPROSTINIL
     Indication: PULMONARY ARTERIAL HYPERTENSION
     Dosage: UNK
     Route: 065
     Dates: end: 20160227
  3. UPTRAVI [Suspect]
     Active Substance: SELEXIPAG
     Indication: PULMONARY ARTERIAL HYPERTENSION
     Route: 048
  4. ADCIRCA [Concomitant]
     Active Substance: TADALAFIL

REACTIONS (8)
  - Infusion site vesicles [Unknown]
  - Injection site pain [Unknown]
  - Infusion site discharge [Unknown]
  - Diarrhoea [Unknown]
  - Abdominal distension [Unknown]
  - Infusion site dermatitis [Unknown]
  - Impaired healing [Unknown]
  - Nausea [Unknown]
